FAERS Safety Report 20794232 (Version 1)
Quarter: 2022Q2

REPORT INFORMATION
  Report Type: Spontaneous
  Country: None (occurrence: IT)
  Receive Date: 20220506
  Receipt Date: 20220506
  Transmission Date: 20220721
  Serious: Yes (Life-Threatening, Hospitalization, Other)
  Sender: FDA-Public Use
  Company Number: None

PATIENT
  Age: 3 Year
  Sex: Female
  Weight: 14 kg

DRUGS (1)
  1. FENTANYL CITRATE [Suspect]
     Active Substance: FENTANYL CITRATE

REACTIONS (10)
  - Brain oedema [Recovered/Resolved]
  - Accidental overdose [Recovered/Resolved]
  - Coma [Recovered/Resolved]
  - Brain herniation [Recovered/Resolved]
  - Intracranial pressure increased [Recovered/Resolved]
  - Right ventricular hypertension [Recovered/Resolved]
  - Bradycardia [Recovered/Resolved]
  - Hydrocephalus [Recovered/Resolved]
  - Toxic leukoencephalopathy [Recovered/Resolved]
  - Unevaluable event [Unknown]
